FAERS Safety Report 24231585 (Version 1)
Quarter: 2024Q3

REPORT INFORMATION
  Report Type: Spontaneous
  Country: GB (occurrence: GB)
  Receive Date: 20240821
  Receipt Date: 20240821
  Transmission Date: 20241016
  Serious: Yes (Other)
  Sender: TEVA
  Company Number: GB-MHRA-TPP26478265C22140030YC1723128280566

PATIENT
  Age: 63 Year
  Sex: Female
  Weight: 60 kg

DRUGS (25)
  1. INDAPAMIDE [Suspect]
     Active Substance: INDAPAMIDE
     Indication: Ill-defined disorder
     Route: 065
     Dates: start: 20231206
  2. CALCIUM CARBONATE [Concomitant]
     Active Substance: CALCIUM CARBONATE
     Indication: Ill-defined disorder
     Dates: start: 20240508
  3. AZITHROMYCIN [Concomitant]
     Active Substance: AZITHROMYCIN
     Indication: Ill-defined disorder
     Dosage: TIME INTERVAL: 0.33333333 WEEKS: (MON, WED, FRI)
     Dates: start: 20240219
  4. AMOXICILLIN [Concomitant]
     Active Substance: AMOXICILLIN
     Indication: Ill-defined disorder
     Dosage: TIME INTERVAL: 0.33333333 DAYS: RESCUE PACK
     Dates: start: 20240508
  5. ATENOLOL [Concomitant]
     Active Substance: ATENOLOL
     Indication: Ill-defined disorder
     Dates: start: 20240508
  6. BENDROFLUMETHIAZIDE [Concomitant]
     Active Substance: BENDROFLUMETHIAZIDE
     Indication: Ill-defined disorder
     Dosage: EACH MORNING,
     Dates: start: 20240807
  7. ALBUTEROL [Concomitant]
     Active Substance: ALBUTEROL
     Indication: Ill-defined disorder
     Dosage: AS NEEDED,
     Dates: start: 20240502
  8. GABAPENTIN [Concomitant]
     Active Substance: GABAPENTIN
     Indication: Ill-defined disorder
     Dates: start: 20240508
  9. SENNA [Concomitant]
     Active Substance: SENNA LEAF\SENNOSIDES\SENNOSIDES A AND B
     Indication: Ill-defined disorder
     Dosage: TAKE 1 OR 2 AT NIGHT,
     Dates: start: 20240607, end: 20240705
  10. MORPHINE SULFATE [Concomitant]
     Active Substance: MORPHINE SULFATE
     Indication: Ill-defined disorder
     Dosage: TO HELP WITH BREATHLESS...,
     Dates: start: 20240508
  11. RAMIPRIL [Concomitant]
     Active Substance: RAMIPRIL
     Indication: Ill-defined disorder
     Dosage: TOTAL 10MG,
     Dates: start: 20240508
  12. ALBUTEROL [Concomitant]
     Active Substance: ALBUTEROL
     Indication: Ill-defined disorder
     Dosage: PUFFS,  VIA SPACER,
     Route: 055
     Dates: start: 20240508
  13. BECLOMETHASONE DIPROPIONATE\FORMOTEROL FUMARATE\GLYCOPYRROLATE [Concomitant]
     Active Substance: BECLOMETHASONE DIPROPIONATE\FORMOTEROL FUMARATE\GLYCOPYRROLATE
     Indication: Ill-defined disorder
     Dosage: PUFFS
     Route: 055
     Dates: start: 20240508
  14. COCODAMOL [Concomitant]
     Active Substance: ACETAMINOPHEN\CODEINE PHOSPHATE
     Indication: Ill-defined disorder
     Dosage: TAKE 1 OR 2
     Dates: start: 20240508
  15. ALENDRONIC ACID [Concomitant]
     Active Substance: ALENDRONIC ACID
     Indication: Ill-defined disorder
     Dosage: TAKE 30 MINUTES BEFORE BREAKFAST , STAY UPRIGHT...
     Dates: start: 20240508
  16. THIAMINE [Concomitant]
     Active Substance: THIAMINE
     Indication: Ill-defined disorder
     Dates: start: 20240508
  17. FOLIC ACID [Concomitant]
     Active Substance: FOLIC ACID
     Indication: Ill-defined disorder
     Dates: start: 20240807
  18. FAMOTIDINE [Concomitant]
     Active Substance: FAMOTIDINE
     Indication: Ill-defined disorder
     Dosage: (AS PER LETTER DATED 01/03/23),
     Dates: start: 20240508
  19. BUTRANS [Concomitant]
     Active Substance: BUPRENORPHINE
     Indication: Ill-defined disorder
     Dates: start: 20240508
  20. MICONAZOLE [Concomitant]
     Active Substance: MICONAZOLE\MICONAZOLE NITRATE
     Indication: Ill-defined disorder
     Dates: start: 20240522, end: 20240527
  21. ATORVASTATIN [Concomitant]
     Active Substance: ATORVASTATIN
     Indication: Ill-defined disorder
     Dosage: ON (AS PER THE D/S 23/05/24)
     Dates: start: 20240701
  22. NIACINAMIDE\PYRIDOXINE HYDROCHLORIDE\RIBOFLAVIN\THIAMINE HYDROCHLORIDE [Concomitant]
     Active Substance: NIACINAMIDE\PYRIDOXINE HYDROCHLORIDE\RIBOFLAVIN\THIAMINE HYDROCHLORIDE
     Indication: Ill-defined disorder
     Dates: start: 20230725
  23. ASPIRIN [Concomitant]
     Active Substance: ASPIRIN
     Indication: Ill-defined disorder
     Dates: start: 20240701
  24. PREDNISOLONE [Concomitant]
     Active Substance: PREDNISOLONE
     Indication: Ill-defined disorder
     Dosage: WEANING DOSE - TO REDUCE BY 1MG EVERY WEEK TO 5...
     Dates: start: 20240508
  25. DOXAZOSIN [Concomitant]
     Active Substance: DOXAZOSIN MESYLATE
     Indication: Ill-defined disorder
     Dates: start: 20240531

REACTIONS (2)
  - Swelling face [Unknown]
  - Headache [Recovered/Resolved]
